FAERS Safety Report 4760244-6 (Version None)
Quarter: 2005Q3

REPORT INFORMATION
  Report Type: 
  Country: None (occurrence: None)
  Receive Date: 20050831
  Receipt Date: 20050810
  Transmission Date: 20060218
  Serious: Yes (Hospitalization)
  Sender: FDA-Public Use
  Company Number: USA0508105136

PATIENT
  Age: 64 Year
  Sex: Female
  Weight: 95 kg

DRUGS (10)
  1. HUMALOG [Suspect]
     Indication: BLOOD GLUCOSE INCREASED
     Dates: start: 20040101
  2. ACTOS [Concomitant]
  3. GLUCOPHAGE [Concomitant]
  4. LANTUS [Concomitant]
  5. CELEBREX [Concomitant]
  6. DIOVAN [Concomitant]
  7. ACIPHEX [Concomitant]
  8. ATENOLOL [Concomitant]
  9. POTASSIUM [Concomitant]
  10. EFFEXOR [Concomitant]

REACTIONS (4)
  - BLOOD GLUCOSE INCREASED [None]
  - DERMAL CYST [None]
  - LOCALISED INFECTION [None]
  - PAIN IN EXTREMITY [None]
